FAERS Safety Report 21120002 (Version 3)
Quarter: 2022Q3

REPORT INFORMATION
  Report Type: Report from Study
  Country: KR (occurrence: None)
  Receive Date: 20220722
  Receipt Date: 20220823
  Transmission Date: 20221026
  Serious: Yes (Death)
  Sender: FDA-Public Use
  Company Number: KR-ROCHE-3144514

PATIENT
  Age: 85 Year
  Sex: Male
  Weight: 58 kg

DRUGS (13)
  1. MOSUNETUZUMAB [Suspect]
     Active Substance: MOSUNETUZUMAB
     Indication: Diffuse large B-cell lymphoma
     Dosage: THE START DATE OF MOST RECENT DOSE OF MOSUNETUZUMAB (45 MG) PRIOR TO AE AND SAE ONSET: 29/JUN/2022 A
     Route: 058
     Dates: start: 20220519
  2. POLATUZUMAB VEDOTIN [Suspect]
     Active Substance: POLATUZUMAB VEDOTIN
     Indication: Diffuse large B-cell lymphoma
     Dosage: THE START DATE OF MOST RECENT DOSE OF POLATUZUMAB VEDOTIN (109.4 MG) PRIOR TO AE AND SAE ONSET: 29/J
     Route: 042
     Dates: start: 20220519
  3. LIPITOR [Concomitant]
     Active Substance: ATORVASTATIN CALCIUM
     Route: 048
     Dates: start: 20160919
  4. TASNA [Concomitant]
     Route: 048
     Dates: start: 20170811
  5. FEROBA YOU SR [Concomitant]
     Route: 048
     Dates: start: 20171208
  6. EDOXABAN TOSYLATE [Concomitant]
     Active Substance: EDOXABAN TOSYLATE
     Route: 048
     Dates: start: 20210407
  7. METFORMIN [Concomitant]
     Active Substance: METFORMIN HYDROCHLORIDE
     Route: 048
     Dates: start: 20211201
  8. NEXIUM [Concomitant]
     Active Substance: ESOMEPRAZOLE MAGNESIUM
     Route: 048
     Dates: start: 20220526
  9. ACETAMINOPHEN [Concomitant]
     Active Substance: ACETAMINOPHEN
     Route: 048
     Dates: start: 20220609
  10. ACETAMINOPHEN [Concomitant]
     Active Substance: ACETAMINOPHEN
     Route: 048
     Dates: start: 20220629, end: 20220629
  11. DEXAMETHASONE [Concomitant]
     Active Substance: DEXAMETHASONE
     Route: 042
     Dates: start: 20220629, end: 20220629
  12. PENIRAMIN [Concomitant]
     Route: 042
     Dates: start: 20220629, end: 20220629
  13. PREDNISOLONE [Concomitant]
     Active Substance: PREDNISOLONE
     Route: 048
     Dates: start: 20220630, end: 20220701

REACTIONS (1)
  - Lymphoma [Fatal]

NARRATIVE: CASE EVENT DATE: 20220718
